FAERS Safety Report 20747017 (Version 1)
Quarter: 2022Q2

REPORT INFORMATION
  Report Type: Spontaneous
  Country: US (occurrence: US)
  Receive Date: 20220425
  Receipt Date: 20220425
  Transmission Date: 20220720
  Serious: No
  Sender: FDA-Public Use
  Company Number: US-PFIZER INC-202100922463

PATIENT
  Age: 75 Year
  Sex: Male

DRUGS (14)
  1. FELDENE [Suspect]
     Active Substance: PIROXICAM
     Dosage: UNK
  2. OMEPRAZOLE [Concomitant]
     Active Substance: OMEPRAZOLE
  3. LEVOTHYROXINE [Concomitant]
     Active Substance: LEVOTHYROXINE
  4. DIGOXIN [Concomitant]
     Active Substance: DIGOXIN
  5. DILTIAZEM [Concomitant]
     Active Substance: DILTIAZEM
  6. PREDNISONE [Concomitant]
     Active Substance: PREDNISONE
  7. METOPROLOL [Concomitant]
     Active Substance: METOPROLOL
  8. ELIQUIS [Concomitant]
     Active Substance: APIXABAN
  9. ALLOPURINOL [Concomitant]
     Active Substance: ALLOPURINOL
  10. MORNIFLUMATE [Concomitant]
     Active Substance: MORNIFLUMATE
  11. VENLAFAXINE [Concomitant]
     Active Substance: VENLAFAXINE HYDROCHLORIDE
  12. ASPIRIN [Concomitant]
     Active Substance: ASPIRIN
  13. IRON [Concomitant]
     Active Substance: IRON
  14. COLACE [Concomitant]
     Active Substance: DOCUSATE SODIUM

REACTIONS (1)
  - Photosensitivity reaction [Unknown]
